FAERS Safety Report 18567798 (Version 1)
Quarter: 2020Q4

REPORT INFORMATION
  Report Type: Spontaneous
  Country: CO (occurrence: CO)
  Receive Date: 20201202
  Receipt Date: 20201202
  Transmission Date: 20210114
  Serious: Yes (Death, Hospitalization)
  Sender: FDA-Public Use
  Company Number: CO-INGENUS PHARMACEUTICALS, LLC-2020INF000212

PATIENT
  Age: 64 Year
  Sex: Female

DRUGS (6)
  1. OXALIPLATIN. [Suspect]
     Active Substance: OXALIPLATIN
     Indication: GALLBLADDER CANCER STAGE IV
     Dosage: UNK
     Route: 065
  2. CAPECITABINE. [Concomitant]
     Active Substance: CAPECITABINE
     Indication: METASTASES TO LIVER
  3. OXALIPLATIN. [Suspect]
     Active Substance: OXALIPLATIN
     Indication: METASTASES TO LIVER
  4. GEMCITABINE. [Suspect]
     Active Substance: GEMCITABINE
     Indication: GALLBLADDER CANCER STAGE IV
     Dosage: UNK
     Route: 065
  5. GEMCITABINE. [Suspect]
     Active Substance: GEMCITABINE
     Indication: METASTASES TO LIVER
  6. CAPECITABINE. [Concomitant]
     Active Substance: CAPECITABINE
     Indication: GALLBLADDER CANCER STAGE IV
     Dosage: UNK
     Route: 065

REACTIONS (1)
  - Thrombotic microangiopathy [Fatal]
